FAERS Safety Report 9001202 (Version 1)
Quarter: 2013Q1

REPORT INFORMATION
  Report Type: Spontaneous
  Country: US (occurrence: US)
  Receive Date: 20130107
  Receipt Date: 20130107
  Transmission Date: 20140127
  Serious: No
  Sender: FDA-Public Use
  Company Number: US-JNJFOC-20121209453

PATIENT
  Age: 44 Year
  Sex: Female

DRUGS (4)
  1. INVEGA SUSTENNA [Suspect]
     Indication: SCHIZOAFFECTIVE DISORDER
     Dosage: INITIATION DOSE
     Route: 030
     Dates: start: 20121203
  2. SEROQUEL [Concomitant]
     Indication: SCHIZOAFFECTIVE DISORDER
     Route: 048
  3. TRAZODONE [Concomitant]
     Indication: SLEEP DISORDER
     Route: 048
  4. LAMICTAL [Concomitant]
     Indication: SCHIZOAFFECTIVE DISORDER
     Route: 048

REACTIONS (1)
  - Incorrect dose administered [Not Recovered/Not Resolved]
